FAERS Safety Report 8662913 (Version 2)
Quarter: 2012Q4

REPORT INFORMATION
  Report Type: Report from Study
  Country: CA (occurrence: CA)
  Receive Date: 20120712
  Receipt Date: 20121023
  Transmission Date: 20130627
  Serious: Yes (Hospitalization, Other)
  Sender: FDA-Public Use
  Company Number: CA-ROCHE-1079828

PATIENT
  Age: 60 Year
  Sex: Male

DRUGS (11)
  1. VEMURAFENIB [Suspect]
     Indication: METASTATIC MALIGNANT MELANOMA
     Route: 048
     Dates: start: 20120602, end: 20120618
  2. VEMURAFENIB [Suspect]
     Route: 048
     Dates: start: 201207, end: 20121009
  3. VICTOZA [Concomitant]
     Indication: DIABETES MELLITUS
  4. IRBESARTAN [Concomitant]
     Dosage: Drug name is Ratio-Irebesartan
     Route: 065
  5. ATORVASTATIN [Concomitant]
     Dosage: Drug name is Ratio-Atorvastatin
     Route: 065
  6. APO-BISOPROLOL [Concomitant]
  7. GLYBURIDE [Concomitant]
     Indication: DIABETES MELLITUS
     Dosage: Drug name is Teva-Glyburide
     Route: 065
  8. AMLODIPINE [Concomitant]
     Dosage: Drug name is mint-Amlodipine
     Route: 065
  9. TEVA-PANTOPRAZOLE [Concomitant]
  10. ASAPHEN [Concomitant]
     Dosage: Drug name is Asaphen E.C.
     Route: 065
  11. FENOFIBRATE [Concomitant]
     Dosage: Drug name is Teva-Fenofibrates-s
     Route: 065

REACTIONS (9)
  - Disease progression [Not Recovered/Not Resolved]
  - Cholecystitis [Recovering/Resolving]
  - Rash [Not Recovered/Not Resolved]
  - Oedema peripheral [Unknown]
  - Chest pain [Not Recovered/Not Resolved]
  - Arthralgia [Recovered/Resolved]
  - Rash [Not Recovered/Not Resolved]
  - Rash [Not Recovered/Not Resolved]
  - Abdominal pain [Not Recovered/Not Resolved]
